FAERS Safety Report 6843838-3 (Version None)
Quarter: 2010Q3

REPORT INFORMATION
  Report Type: 
  Country: None (occurrence: None)
  Receive Date: 20100715
  Receipt Date: 20100702
  Transmission Date: 20110219
  Serious: Yes (Other)
  Sender: FDA-Public Use
  Company Number: PHHY2010IE07291

PATIENT
  Sex: Female

DRUGS (10)
  1. CLOZARIL [Suspect]
     Indication: SCHIZOPHRENIA
     Dosage: UNK
     Route: 048
     Dates: start: 19960101
  2. CLOZARIL [Suspect]
     Dosage: 700 MG/DAY
     Route: 048
     Dates: start: 20060101
  3. CLOZARIL [Suspect]
     Dosage: UNK
  4. VENLAFAXINE [Concomitant]
     Indication: DEPRESSION
     Dosage: 300 MG, QD
     Route: 048
     Dates: start: 20050101
  5. ELTROXIN [Concomitant]
     Dosage: 50 UG, DAILY
  6. ZIMOVANE [Concomitant]
     Dosage: 7.5 MG, UNK
     Route: 048
  7. CENTYL K [Concomitant]
     Indication: HYPERTENSION
     Dosage: 50 MG
     Route: 048
  8. CAPOTEN [Concomitant]
     Indication: HYPERTENSION
     Dosage: 50 MG, DAILY
     Route: 048
  9. LARGACTIL [Concomitant]
  10. INVEGA [Concomitant]

REACTIONS (5)
  - ASTHENIA [None]
  - DIZZINESS [None]
  - MALAISE [None]
  - NERVOUS SYSTEM DISORDER [None]
  - SYNCOPE [None]
